FAERS Safety Report 9908007 (Version 1)
Quarter: 2014Q1

REPORT INFORMATION
  Report Type: Report from Study
  Country: US (occurrence: US)
  Receive Date: 20140219
  Receipt Date: 20140219
  Transmission Date: 20141002
  Serious: Yes (Other)
  Sender: FDA-Public Use
  Company Number: US-ROCHE-1324193

PATIENT
  Age: 50 Year
  Sex: Male

DRUGS (25)
  1. AVASTIN [Suspect]
     Indication: COLON CANCER
     Dosage: Q OTHER WEEK
     Route: 042
     Dates: start: 20100621
  2. FLUOROURACIL [Concomitant]
     Dosage: Q WEEK
     Route: 065
     Dates: start: 20100621
  3. FLUOROURACIL [Concomitant]
     Route: 065
     Dates: start: 20111205
  4. FLUOROURACIL [Concomitant]
     Route: 065
     Dates: start: 20020329, end: 20030410
  5. LEUCOVORIN [Concomitant]
     Route: 042
     Dates: start: 20020329, end: 20030410
  6. LEUCOVORIN [Concomitant]
     Dosage: Q WEEK
     Route: 042
     Dates: start: 20100621
  7. IRINOTECAN [Concomitant]
     Route: 065
     Dates: start: 20020405, end: 20030410
  8. IRINOTECAN [Concomitant]
     Dosage: Q WEEK
     Route: 065
     Dates: start: 20100621, end: 20111114
  9. ARIXTRA [Concomitant]
     Dosage: AS DIRECTED
     Route: 065
  10. SONATA (UNITED STATES) [Concomitant]
     Dosage: QHS PRN SLEEP
     Route: 048
  11. LEVAQUIN [Concomitant]
     Route: 048
  12. PROMETHAZINE HCL [Concomitant]
     Indication: NAUSEA
     Dosage: PRN
     Route: 048
  13. CIPRO [Concomitant]
     Route: 048
  14. NEXIUM [Concomitant]
     Route: 048
  15. SCOPOLAMINE HYDROBROMIDE [Concomitant]
     Route: 062
  16. DARVOCET [Concomitant]
     Dosage: TAKE 2; PRN
     Route: 048
  17. RESTORIL (UNITED STATES) [Concomitant]
     Dosage: QHS
     Route: 048
  18. AVELOX [Concomitant]
     Route: 048
  19. DOXYCYCLINE [Concomitant]
     Route: 048
  20. CYANOCOBALAMIN [Concomitant]
     Dosage: TWICE A WEEK ON MONDAYS AND FRIDAYS
     Route: 048
  21. ZYRTEC [Concomitant]
     Route: 048
  22. TUSSIONEX (UNITED STATES) [Concomitant]
     Dosage: 10-8MG/5ML SUSPENSION
     Route: 048
  23. OXALIPLATIN [Concomitant]
     Route: 065
     Dates: start: 20111114
  24. ASPIRIN [Concomitant]
     Route: 065
  25. POTASSIUM CHLORIDE [Concomitant]
     Dosage: TAKE 2 PO
     Route: 048

REACTIONS (17)
  - Benign hepatic neoplasm [Unknown]
  - Nephrectomy [Unknown]
  - Small intestinal resection [Unknown]
  - Pain in extremity [Unknown]
  - Muscle spasms [Unknown]
  - Fatigue [Unknown]
  - Pain [Unknown]
  - Bone pain [Unknown]
  - Anaemia [Unknown]
  - Pelvic mass [Unknown]
  - Disease progression [Unknown]
  - Inflammation [Unknown]
  - Cholecystitis [Unknown]
  - Pulmonary embolism [Unknown]
  - Dysgeusia [Unknown]
  - Gastritis [Unknown]
  - Muscle spasms [Unknown]
